FAERS Safety Report 9673204 (Version 1)
Quarter: 2013Q4

REPORT INFORMATION
  Report Type: Spontaneous
  Country: US (occurrence: US)
  Receive Date: 20131106
  Receipt Date: 20131106
  Transmission Date: 20140711
  Serious: No
  Sender: FDA-Public Use
  Company Number: US-AMGEN-USASP2013071883

PATIENT
  Age: 48 Year
  Sex: Female

DRUGS (9)
  1. ENBREL [Suspect]
     Indication: PRODUCT USED FOR UNKNOWN INDICATION
     Dosage: UNK
     Route: 065
  2. OMEPRAZOLE [Concomitant]
     Dosage: 40 MG, UNK
     Route: 048
  3. MTX                                /00113802/ [Concomitant]
     Dosage: 2.5 MG, UNK
     Route: 048
  4. FOLIC ACID [Concomitant]
     Dosage: 1 MG, UNK
     Route: 048
  5. REMICADE [Concomitant]
     Dosage: 100 MG, UNK
     Route: 042
  6. PREDNISONE [Concomitant]
     Dosage: 5 MG, UNK
     Route: 048
  7. XELJANZ [Concomitant]
     Dosage: UNK
  8. HUMIRA [Concomitant]
     Dosage: UNK
  9. CIMZIA [Concomitant]
     Dosage: UNK

REACTIONS (5)
  - Treatment failure [Unknown]
  - Pain [Unknown]
  - Musculoskeletal stiffness [Unknown]
  - Joint swelling [Unknown]
  - Activities of daily living impaired [Unknown]
